FAERS Safety Report 13667669 (Version 2)
Quarter: 2017Q2

REPORT INFORMATION
  Report Type: Report from Study
  Country: US (occurrence: US)
  Receive Date: 20170620
  Receipt Date: 20170623
  Transmission Date: 20170830
  Serious: Yes (Death)
  Sender: FDA-Public Use
  Company Number: US-ROCHE-1952209

PATIENT

DRUGS (1)
  1. ALTEPLASE [Suspect]
     Active Substance: ALTEPLASE
     Indication: PLEURAL EFFUSION
     Dosage: 6 MG OF ALTEPLASE IN 50 ML OF NORMAL SALINE INSTILLED VIA A PLEURAL CHEST TUBE
     Route: 034

REACTIONS (1)
  - Aspiration [Fatal]
